FAERS Safety Report 19761949 (Version 2)
Quarter: 2021Q3

REPORT INFORMATION
  Report Type: Other
  Country: US (occurrence: US)
  Receive Date: 20210827
  Receipt Date: 20210907
  Transmission Date: 20211014
  Serious: Yes (Hospitalization, Other)
  Sender: FDA-Public Use
  Company Number: US-ACORDA-ACO_169992_2021

PATIENT
  Age: 64 Year
  Sex: Male

DRUGS (2)
  1. INBRIJA [Suspect]
     Active Substance: LEVODOPA
     Indication: PARKINSON^S DISEASE
     Dosage: 84 MILLIGRAM, PRN, DO NOT EXCEED 5 DOSES IN 1 DAY
     Dates: start: 20210115
  2. INBRIJA [Suspect]
     Active Substance: LEVODOPA
     Indication: ON AND OFF PHENOMENON

REACTIONS (2)
  - Device difficult to use [Unknown]
  - Brain operation [Recovering/Resolving]

NARRATIVE: CASE EVENT DATE: 20210709
